FAERS Safety Report 10276531 (Version 3)
Quarter: 2014Q3

REPORT INFORMATION
  Report Type: Spontaneous
  Country: IT (occurrence: IT)
  Receive Date: 20140703
  Receipt Date: 20140812
  Transmission Date: 20150326
  Serious: Yes (Other)
  Sender: FDA-Public Use
  Company Number: IT-PFIZER INC-2014178832

PATIENT
  Age: 66 Year

DRUGS (8)
  1. TRIATEC [Concomitant]
     Active Substance: RAMIPRIL
  2. SUTENT [Suspect]
     Active Substance: SUNITINIB MALATE
     Dosage: 25 MG, DAILY (4/6 WEEKS)
     Route: 048
     Dates: start: 20130214
  3. SUTENT [Suspect]
     Active Substance: SUNITINIB MALATE
     Indication: METASTATIC RENAL CELL CARCINOMA
     Dosage: 50 MG, DAILY (4/6 WEEKS)
     Route: 048
     Dates: start: 20120928
  4. ALLOPURINOL. [Concomitant]
     Active Substance: ALLOPURINOL
  5. EUTIROX [Concomitant]
     Active Substance: LEVOTHYROXINE SODIUM
  6. LANSOPRAZOLE. [Concomitant]
     Active Substance: LANSOPRAZOLE
  7. SUTENT [Suspect]
     Active Substance: SUNITINIB MALATE
     Dosage: 37.5 MG, DAILY (4/6 WEEKS)
     Route: 048
     Dates: start: 20121123
  8. CARVEDILOL. [Concomitant]
     Active Substance: CARVEDILOL

REACTIONS (2)
  - Proteinuria [Recovering/Resolving]
  - Glomerulonephritis membranous [Unknown]

NARRATIVE: CASE EVENT DATE: 20140610
